FAERS Safety Report 6077508-9 (Version None)
Quarter: 2009Q1

REPORT INFORMATION
  Report Type: 
  Country: None (occurrence: None)
  Receive Date: 20090213
  Receipt Date: 20090205
  Transmission Date: 20090719
  Serious: Yes (Hospitalization)
  Sender: FDA-Public Use
  Company Number: FR-ASTRAZENECA-2009CG00328

PATIENT
  Age: 65 Year
  Sex: Female

DRUGS (6)
  1. CRESTOR [Suspect]
     Indication: HYPERCHOLESTEROLAEMIA
     Route: 048
     Dates: start: 20070101, end: 20080709
  2. SPIRONOLACTONE [Concomitant]
     Route: 048
     Dates: start: 20040101
  3. KALEORID [Concomitant]
     Route: 048
  4. FORLAX [Concomitant]
     Route: 048
     Dates: start: 20070101
  5. HEPT-A-MYL [Concomitant]
     Route: 048
     Dates: start: 20080201
  6. PRAZEPAM [Concomitant]
     Route: 048

REACTIONS (2)
  - RENAL FAILURE [None]
  - RHABDOMYOLYSIS [None]
